FAERS Safety Report 9953455 (Version 1)
Quarter: 2014Q1

REPORT INFORMATION
  Report Type: Report from Study
  Country: US (occurrence: US)
  Receive Date: 20140304
  Receipt Date: 20140304
  Transmission Date: 20141002
  Serious: Yes (Other)
  Sender: FDA-Public Use
  Company Number: US-ABBVIE-13P-163-1075563-00

PATIENT
  Age: 56 Year
  Sex: Male

DRUGS (7)
  1. HUMIRA [Suspect]
     Indication: ANKYLOSING SPONDYLITIS
     Dates: start: 200909
  2. CELEBREX [Concomitant]
     Indication: ANKYLOSING SPONDYLITIS
     Dosage: 200 MG DAILY
  3. ZOCOR [Concomitant]
     Indication: BLOOD CHOLESTEROL
     Dosage: 10 MG DAILY
  4. TOPROL XL [Concomitant]
     Indication: BLOOD PRESSURE
     Dosage: 25 MG DAILY
  5. MULTIPLE VITAMIN [Concomitant]
     Indication: PRODUCT USED FOR UNKNOWN INDICATION
     Dosage: DAILY
  6. FISH OIL [Concomitant]
     Indication: PRODUCT USED FOR UNKNOWN INDICATION
     Dosage: 2000 MG DAILY
  7. CHROMIUM PICOLINATE [Concomitant]
     Indication: PRODUCT USED FOR UNKNOWN INDICATION
     Dosage: 200 MCG DAILY

REACTIONS (3)
  - Basal cell carcinoma [Not Recovered/Not Resolved]
  - Sinusitis [Unknown]
  - Respiratory tract congestion [Unknown]
